FAERS Safety Report 20538753 (Version 1)
Quarter: 2022Q1

REPORT INFORMATION
  Report Type: Spontaneous
  Country: CA (occurrence: CA)
  Receive Date: 20220302
  Receipt Date: 20220302
  Transmission Date: 20220423
  Serious: Yes (Other)
  Sender: FDA-Public Use
  Company Number: CA-JNJFOC-20210838232

PATIENT
  Age: 28 Year
  Sex: Male
  Weight: 81 kg

DRUGS (4)
  1. INFLIXIMAB [Suspect]
     Active Substance: INFLIXIMAB
     Indication: Crohn^s disease
     Route: 042
  2. CIPROFLOXACIN [Concomitant]
     Active Substance: CIPROFLOXACIN
  3. METHOTREXATE [Concomitant]
     Active Substance: METHOTREXATE
     Indication: Crohn^s disease
     Route: 058
  4. METRONIDAZOLE BENZOATE [Concomitant]
     Active Substance: METRONIDAZOLE BENZOATE

REACTIONS (7)
  - Haemorrhage [Unknown]
  - Fistula discharge [Unknown]
  - Anal fistula [Unknown]
  - Palpitations [Unknown]
  - Pain [Unknown]
  - Off label use [Unknown]
  - Intentional product use issue [Unknown]
